FAERS Safety Report 5746858-5 (Version None)
Quarter: 2008Q2

REPORT INFORMATION
  Report Type: 
  Country: None (occurrence: None)
  Receive Date: 20080522
  Receipt Date: 20080514
  Transmission Date: 20081010
  Serious: Yes (Other)
  Sender: FDA-Public Use
  Company Number: JP-SANOFI-SYNTHELABO-F01200800291

PATIENT
  Sex: Male
  Weight: 46.5 kg

DRUGS (8)
  1. MAGMITT [Concomitant]
     Dosage: 990 UNK
     Route: 048
     Dates: start: 20070628
  2. RENAGEL [Concomitant]
     Dosage: 750 MG
     Route: 048
     Dates: start: 20070702, end: 20071004
  3. RENAGEL [Concomitant]
     Dosage: 3000 MG
     Route: 048
     Dates: start: 20071005
  4. PERINDOPRIL ERBUMINE [Concomitant]
     Indication: HYPERTENSION
     Dosage: 8 MG
     Route: 048
     Dates: start: 20070613
  5. NORVASC [Concomitant]
     Indication: HYPERTENSION
     Dosage: 10 MG
     Route: 048
     Dates: start: 20070709
  6. DIOVAN [Concomitant]
     Indication: HYPERTENSION
     Dosage: 80 MG
     Route: 048
  7. ADALAT [Concomitant]
     Indication: HYPERTENSION
     Dosage: 40 MG
     Route: 048
  8. CLOPIDOGREL [Suspect]
     Indication: CEREBRAL ISCHAEMIA
     Route: 048
     Dates: start: 20070628

REACTIONS (1)
  - METABOLIC ACIDOSIS [None]
